FAERS Safety Report 5722327-3 (Version None)
Quarter: 2008Q2

REPORT INFORMATION
  Report Type: 
  Country: None (occurrence: None)
  Receive Date: 20080429
  Receipt Date: 20070802
  Transmission Date: 20081010
  Serious: No
  Sender: FDA-Public Use
  Company Number: US-ASTRAZENECA-2007UW18602

PATIENT
  Age: 43 Year
  Sex: Male
  Weight: 59 kg

DRUGS (3)
  1. NEXIUM [Suspect]
     Indication: HIATUS HERNIA
     Route: 048
     Dates: start: 20070701
  2. CYMBALTA [Concomitant]
  3. LORAZEPAM [Concomitant]

REACTIONS (4)
  - ANXIETY [None]
  - DISORIENTATION [None]
  - DIZZINESS [None]
  - HYPOAESTHESIA [None]
